FAERS Safety Report 16260067 (Version 1)
Quarter: 2019Q2

REPORT INFORMATION
  Report Type: Spontaneous
  Country: PL (occurrence: PL)
  Receive Date: 20190501
  Receipt Date: 20190501
  Transmission Date: 20190711
  Serious: Yes (Other)
  Sender: FDA-Public Use
  Company Number: PL-009507513-1904POL012372

PATIENT
  Age: 74 Year

DRUGS (2)
  1. PROSCAR [Suspect]
     Active Substance: FINASTERIDE
     Indication: BENIGN PROSTATIC HYPERPLASIA
     Dosage: DOSE: 1 TABLET, 24 HOURS
     Route: 048
  2. OMNIC [Concomitant]
     Active Substance: TAMSULOSIN HYDROCHLORIDE
     Dosage: UNK

REACTIONS (4)
  - Breast enlargement [Recovering/Resolving]
  - Breast induration [Recovering/Resolving]
  - Nipple pain [Recovering/Resolving]
  - Breast neoplasm [Recovering/Resolving]
